FAERS Safety Report 21357997 (Version 1)
Quarter: 2022Q3

REPORT INFORMATION
  Report Type: Spontaneous
  Country: FR (occurrence: FR)
  Receive Date: 20220921
  Receipt Date: 20220921
  Transmission Date: 20221027
  Serious: Yes (Other)
  Sender: FDA-Public Use
  Company Number: None

PATIENT
  Age: 19 Year
  Sex: Female
  Weight: 60 kg

DRUGS (10)
  1. QUETIAPINE [Suspect]
     Active Substance: QUETIAPINE
     Indication: Incorrect dose administered
     Dosage: THERAPY END DATE : NASK, UNIT DOSE : 800 MG
     Route: 065
     Dates: start: 20220825
  2. QUETIAPINE [Suspect]
     Active Substance: QUETIAPINE
     Indication: Mental disorder
  3. VALIUM [Suspect]
     Active Substance: DIAZEPAM
     Indication: Mental disorder
     Dosage: UNIT DOSE : 50 MG, THERAPY END DATE
     Dates: start: 20220825
  4. VALIUM [Suspect]
     Active Substance: DIAZEPAM
     Indication: Incorrect dose administered
  5. XANAX [Suspect]
     Active Substance: ALPRAZOLAM
     Indication: Incorrect dose administered
     Dosage: THERAPY END DATE : NASK, UNIT DOSE :2.5 MG
     Dates: start: 20220825
  6. XANAX [Suspect]
     Active Substance: ALPRAZOLAM
     Indication: Mental disorder
  7. TRIMEPRAZINE [Suspect]
     Active Substance: TRIMEPRAZINE
     Indication: Mental disorder
     Dosage: THERAPY END DATE : NASK, UNIT DOSE : 50 MG
     Dates: start: 20220825
  8. TRIMEPRAZINE [Suspect]
     Active Substance: TRIMEPRAZINE
     Indication: Incorrect dose administered
  9. ACETAMINOPHEN\CODEINE PHOSPHATE [Concomitant]
     Active Substance: ACETAMINOPHEN\CODEINE PHOSPHATE
     Indication: Product used for unknown indication
  10. VENLAFAXINE [Concomitant]
     Active Substance: VENLAFAXINE HYDROCHLORIDE
     Indication: Product used for unknown indication

REACTIONS (5)
  - Asthenia [Recovered/Resolved]
  - Incorrect dose administered [Recovered/Resolved]
  - Nausea [Recovered/Resolved]
  - Vertigo [Recovered/Resolved]
  - Abdominal pain [Recovered/Resolved]

NARRATIVE: CASE EVENT DATE: 20220825
